FAERS Safety Report 4902972-5 (Version None)
Quarter: 2006Q1

REPORT INFORMATION
  Report Type: 
  Country: None (occurrence: None)
  Receive Date: 20060207
  Receipt Date: 20050422
  Transmission Date: 20060701
  Serious: Yes (Death)
  Sender: FDA-Public Use
  Company Number: US-MERCK-0504USA04441

PATIENT
  Age: 66 Year
  Sex: Male
  Weight: 80 kg

DRUGS (2)
  1. VIOXX [Suspect]
     Indication: ARTHRALGIA
     Route: 048
     Dates: start: 20001102, end: 20020401
  2. VIOXX [Suspect]
     Route: 048
     Dates: start: 20001102, end: 20020401

REACTIONS (5)
  - ACCIDENT [None]
  - CARDIOPULMONARY FAILURE [None]
  - COUGH [None]
  - MYOCARDIAL INFARCTION [None]
  - UPPER RESPIRATORY TRACT CONGESTION [None]
